FAERS Safety Report 5009527-5 (Version None)
Quarter: 2006Q2

REPORT INFORMATION
  Report Type: 
  Country: None (occurrence: None)
  Receive Date: 20060524
  Receipt Date: 20060523
  Transmission Date: 20061013
  Serious: Yes (Life-Threatening, Hospitalization)
  Sender: FDA-Public Use
  Company Number: PHFR2006GB01783

PATIENT
  Age: 74 Year
  Sex: Female

DRUGS (6)
  1. OMEPRAZOLE [Concomitant]
     Dosage: 20 MG, QD
     Route: 048
  2. CAPOTEN [Concomitant]
     Dosage: 25 MG, BID
     Route: 048
  3. ADALAT CC [Concomitant]
     Dosage: 30 MG, QD
     Route: 048
  4. TAMOXIFEN [Concomitant]
     Dosage: 20 MG, QD
     Route: 048
  5. FUROSEMIDE [Concomitant]
     Dosage: 40 MG, QD
     Route: 065
  6. VOLTAREN [Suspect]
     Indication: ARTHRALGIA
     Dosage: 50 MG, TID
     Route: 048
     Dates: start: 20041217, end: 20041217

REACTIONS (1)
  - LOSS OF CONSCIOUSNESS [None]
